FAERS Safety Report 8650550 (Version 3)
Quarter: 2012Q4

REPORT INFORMATION
  Report Type: 
  Country: DE (occurrence: DE)
  Receive Date: 20120705
  Receipt Date: 20121218
  Transmission Date: 20130627
  Serious: Yes (Death, Hospitalization)
  Sender: FDA-Public Use
  Company Number: DE-JNJFOC-20120700962

PATIENT
  Sex: Male

DRUGS (3)
  1. ZYTIGA [Suspect]
     Indication: PROSTATE CANCER METASTATIC
     Route: 048
     Dates: start: 20120521, end: 20120601
  2. PREDNISOLONE [Concomitant]
     Indication: PROSTATE CANCER METASTATIC
     Route: 065
     Dates: start: 20120521, end: 20120605
  3. BENZODIAZEPINE NOS [Concomitant]
     Indication: RESTLESSNESS
     Route: 065

REACTIONS (4)
  - Prostate cancer metastatic [Fatal]
  - Psychotic disorder [Recovering/Resolving]
  - Renal failure acute [Unknown]
  - Infection [Unknown]
